FAERS Safety Report 8725244 (Version 3)
Quarter: 2012Q4

REPORT INFORMATION
  Report Type: Report from Study
  Country: AU (occurrence: AU)
  Receive Date: 20120815
  Receipt Date: 20120928
  Transmission Date: 20130627
  Serious: Yes (Hospitalization)
  Sender: FDA-Public Use
  Company Number: AU-GILEAD-2012-0059275

PATIENT
  Age: 80 Year
  Sex: Female

DRUGS (13)
  1. AZTREONAM LYSINE [Suspect]
     Indication: BRONCHIECTASIS
     Dosage: 75 mg, TID
     Route: 055
     Dates: start: 20120713, end: 20120727
  2. SERETIDE [Concomitant]
     Indication: BRONCHIECTASIS
     Dosage: 275 mg, BID
     Route: 045
  3. SPIRIVA [Concomitant]
     Indication: BRONCHIECTASIS
     Dosage: 18 ?g, QD
     Route: 045
  4. AVAPRO [Concomitant]
     Indication: HYPERTENSION
     Dosage: 150 mg, QD
     Route: 048
  5. LIPITOR [Concomitant]
     Indication: HYPERCHOLESTEROLAEMIA
     Dosage: 20 mg, QD
     Route: 048
  6. ACIMAX [Concomitant]
     Indication: GASTROOESOPHAGEAL REFLUX DISEASE
     Dosage: 20 mg, QD
     Route: 048
  7. CARTIA                             /00002701/ [Concomitant]
     Indication: PROPHYLAXIS
     Dosage: 100 mg, QD
     Route: 048
  8. ERYTHROMYCIN [Concomitant]
     Indication: LOCALISED INFECTION
     Dosage: 800 mg, BID
     Route: 048
     Dates: start: 20120718, end: 20120723
  9. GREEN LIPPED MUSSEL [Concomitant]
     Indication: PROPHYLAXIS
     Dosage: 50 mg, BID
     Route: 048
  10. BISOLVON [Concomitant]
     Indication: PROPHYLAXIS
     Dosage: 8 mg, prn
     Route: 048
  11. COQ-10 [Concomitant]
     Indication: PROPHYLAXIS
     Dosage: 75 mg, QD
     Route: 048
  12. VITAMIN D NOS [Concomitant]
     Indication: PROPHYLAXIS
     Dosage: 20 ?g, QD
     Route: 048
  13. MAGNESIUM [Concomitant]
     Indication: PROPHYLAXIS
     Dosage: 500 mg, BID
     Route: 048

REACTIONS (1)
  - Pneumonia [Recovered/Resolved]
